FAERS Safety Report 17004237 (Version 1)
Quarter: 2019Q4

REPORT INFORMATION
  Report Type: Spontaneous
  Country: GB (occurrence: GB)
  Receive Date: 20191107
  Receipt Date: 20191107
  Transmission Date: 20200122
  Serious: Yes (Other)
  Sender: FDA-Public Use
  Company Number: GB-ASTRAZENECA-2019SF55198

PATIENT
  Age: 45 Year
  Sex: Female

DRUGS (3)
  1. DIHYDROCODEINE [Concomitant]
     Active Substance: DIHYDROCODEINE
     Dosage: TAKING THESE LAST FIVE MONTHS
  2. PARACETAMOL DC [Concomitant]
     Dosage: TAKING THESE LAST FIVE MONTHS
  3. OMEPRAZOLE. [Suspect]
     Active Substance: OMEPRAZOLE
     Indication: BARRETT^S OESOPHAGUS
     Dosage: 60.0MG UNKNOWN
     Route: 048
     Dates: start: 19880101

REACTIONS (3)
  - Hunger [Not Recovered/Not Resolved]
  - Amnesia [Not Recovered/Not Resolved]
  - Hyperhidrosis [Not Recovered/Not Resolved]

NARRATIVE: CASE EVENT DATE: 19980101
